FAERS Safety Report 6695934-1 (Version None)
Quarter: 2010Q2

REPORT INFORMATION
  Report Type: 
  Country: None (occurrence: None)
  Receive Date: 20100426
  Receipt Date: 20100414
  Transmission Date: 20101027
  Serious: Yes (Hospitalization)
  Sender: FDA-Public Use
  Company Number: JP-PFIZER INC-2009203529

PATIENT
  Age: 51 Year
  Sex: Male

DRUGS (5)
  1. SUNITINIB MALATE [Suspect]
     Indication: GASTROINTESTINAL STROMAL TUMOUR
     Dosage: 37.5 MG, 1X/DAY
     Dates: start: 20080925, end: 20081125
  2. NAUZELIN [Concomitant]
     Dosage: UNK
     Route: 048
     Dates: start: 20080925
  3. KERATINAMIN [Concomitant]
     Dosage: UNK
     Route: 062
     Dates: start: 20080925
  4. ISODINE [Concomitant]
     Dosage: UNK
     Dates: start: 20080925
  5. FERROMIA [Concomitant]
     Dosage: UNK
     Route: 048
     Dates: start: 20081002

REACTIONS (5)
  - ABDOMINAL PAIN [None]
  - GASTROINTESTINAL STROMAL TUMOUR [None]
  - LIVER ABSCESS [None]
  - MALIGNANT NEOPLASM PROGRESSION [None]
  - PYREXIA [None]
